FAERS Safety Report 18775961 (Version 2)
Quarter: 2021Q1

REPORT INFORMATION
  Report Type: Spontaneous
  Country: FR (occurrence: FR)
  Receive Date: 20210122
  Receipt Date: 20210209
  Transmission Date: 20210419
  Serious: Yes (Hospitalization)
  Sender: FDA-Public Use
  Company Number: FR-SA-2021SA017831

PATIENT

DRUGS (3)
  1. ELOCTA [Suspect]
     Active Substance: EFMOROCTOCOG ALFA
     Indication: HAEMORRHAGE
  2. NOTOS [Concomitant]
  3. ELOCTA [Suspect]
     Active Substance: EFMOROCTOCOG ALFA
     Indication: HAEMORRHAGE

REACTIONS (1)
  - Surgery [Unknown]
